FAERS Safety Report 25255129 (Version 1)
Quarter: 2025Q2

REPORT INFORMATION
  Report Type: Spontaneous
  Country: US (occurrence: US)
  Receive Date: 20250430
  Receipt Date: 20250430
  Transmission Date: 20250717
  Serious: No
  Sender: MYLAN
  Company Number: US-MYLANLABS-2025M1034263

PATIENT
  Sex: Female

DRUGS (4)
  1. NITROGLYCERIN TRANSDERMAL DELIVERY SYSTEM [Suspect]
     Active Substance: NITROGLYCERIN
     Indication: Product used for unknown indication
     Dosage: 0.1 MILLIGRAM, QH (PER HOUR)
     Dates: start: 2025
  2. NITROGLYCERIN TRANSDERMAL DELIVERY SYSTEM [Suspect]
     Active Substance: NITROGLYCERIN
     Dosage: 0.1 MILLIGRAM, QH (PER HOUR)
     Route: 062
     Dates: start: 2025
  3. NITROGLYCERIN TRANSDERMAL DELIVERY SYSTEM [Suspect]
     Active Substance: NITROGLYCERIN
     Dosage: 0.1 MILLIGRAM, QH (PER HOUR)
     Route: 062
     Dates: start: 2025
  4. NITROGLYCERIN TRANSDERMAL DELIVERY SYSTEM [Suspect]
     Active Substance: NITROGLYCERIN
     Dosage: 0.1 MILLIGRAM, QH (PER HOUR)
     Dates: start: 2025

REACTIONS (2)
  - Product physical issue [Unknown]
  - Accidental exposure to product [Unknown]

NARRATIVE: CASE EVENT DATE: 20250101
